FAERS Safety Report 11895946 (Version 6)
Quarter: 2016Q3

REPORT INFORMATION
  Report Type: Spontaneous
  Country: FR (occurrence: FR)
  Receive Date: 20160107
  Receipt Date: 20160714
  Transmission Date: 20161109
  Serious: Yes (Death, Other)
  Sender: FDA-Public Use
  Company Number: FR-PFIZER INC-2015478539

PATIENT
  Age: 4 Year
  Sex: Male
  Weight: 16 kg

DRUGS (3)
  1. COLCHICINE OPOCALCIUM [Interacting]
     Active Substance: COLCHICINE
     Indication: PERICARDITIS
     Dosage: 8 MG OF COLCHICINE 2 TIMES A DAY (16 TABLETS OF 0.5 MG CRUSHED WITH A BIT OF WATER).
  2. ZITHROMAX [Suspect]
     Active Substance: AZITHROMYCIN DIHYDRATE
     Dosage: UNK
  3. PARACETAMOL [Concomitant]
     Active Substance: ACETAMINOPHEN
     Dosage: UNK

REACTIONS (4)
  - Drug interaction [Fatal]
  - Toxicity to various agents [Fatal]
  - Vomiting [Unknown]
  - Diarrhoea [Unknown]
